FAERS Safety Report 4520491-5 (Version None)
Quarter: 2004Q4

REPORT INFORMATION
  Report Type: 
  Country: None (occurrence: None)
  Receive Date: 20041203
  Receipt Date: 20041105
  Transmission Date: 20050328
  Serious: Yes (Other)
  Sender: FDA-Public Use
  Company Number: STA-AE-04-MTX-552

PATIENT
  Age: 54 Year
  Sex: Male

DRUGS (5)
  1. METHOTREXATE [Suspect]
     Dosage: 5 MG 1X PER 1 WK
     Dates: start: 19991120
  2. ETANERCEPT (ETANERCEPT, INJECTION) [Suspect]
     Indication: RHEUMATOID ARTHRITIS
     Dosage: 25 MG 2X 1WK, SC
     Route: 058
     Dates: start: 19990601
  3. FOLIC ACID [Concomitant]
  4. CALCIUM (CALCIUM) [Concomitant]
  5. MULTIVITAMINS, PLAIN (MULTIVITAMINS, PLAIN) [Concomitant]

REACTIONS (2)
  - B-CELL SMALL LYMPHOCYTIC LYMPHOMA [None]
  - NECK MASS [None]
